FAERS Safety Report 4273885-X (Version None)
Quarter: 2004Q1

REPORT INFORMATION
  Report Type: 
  Country: None (occurrence: None)
  Receive Date: 20040115
  Receipt Date: 20031229
  Transmission Date: 20041129
  Serious: Yes (Other)
  Sender: FDA-Public Use
  Company Number: USA031255387

PATIENT
  Age: 61 Year
  Sex: Male

DRUGS (8)
  1. HUMULIN N [Suspect]
     Indication: DIABETES MELLITUS
     Dates: start: 20031001
  2. METFORMIN HCL [Concomitant]
  3. LESCOL XL [Concomitant]
  4. LISINOPRIL [Concomitant]
  5. OMEPRAZOLE [Concomitant]
  6. FENTOXIFYLLINE [Concomitant]
  7. ATENOLOL [Concomitant]
  8. ACTOS [Concomitant]

REACTIONS (6)
  - BLOOD GLUCOSE INCREASED [None]
  - CONTUSION [None]
  - EX-SMOKER [None]
  - MEDICAL DEVICE COMPLICATION [None]
  - MYOCARDIAL INFARCTION [None]
  - WEIGHT INCREASED [None]
